FAERS Safety Report 6383440-3 (Version None)
Quarter: 2009Q3

REPORT INFORMATION
  Report Type: 
  Country: None (occurrence: None)
  Receive Date: 20090929
  Receipt Date: 20090929
  Transmission Date: 20100115
  Serious: Yes (Hospitalization)
  Sender: FDA-Public Use
  Company Number: None

PATIENT
  Sex: Male
  Weight: 86.8 kg

DRUGS (2)
  1. CARBOPLATIN [Suspect]
     Dosage: 744 MG
  2. TAXOL [Suspect]
     Dosage: 240MG

REACTIONS (7)
  - ABASIA [None]
  - ATRIAL FIBRILLATION [None]
  - LUNG NEOPLASM MALIGNANT [None]
  - MUSCLE ATROPHY [None]
  - PNEUMONIA [None]
  - SEPTIC SHOCK [None]
  - WEIGHT DECREASED [None]
